FAERS Safety Report 6255508-3 (Version None)
Quarter: 2009Q3

REPORT INFORMATION
  Report Type: 
  Country: None (occurrence: None)
  Receive Date: 20090702
  Receipt Date: 20090623
  Transmission Date: 20100115
  Serious: Yes (Death, Life-Threatening, Hospitalization, Disabling)
  Sender: FDA-Public Use
  Company Number: US-GENENTECH-267964

PATIENT
  Sex: Male
  Weight: 96.8 kg

DRUGS (7)
  1. EFALIZUMAB [Suspect]
     Indication: PSORIASIS
     Dosage: 1 MG/KG, 1/WEEK
     Route: 058
     Dates: start: 20040901
  2. ASPIRIN [Concomitant]
     Indication: CARDIOVASCULAR DISORDER
  3. PRAVACHOL [Concomitant]
     Indication: HYPERLIPIDAEMIA
  4. PRAVACHOL [Concomitant]
     Indication: CARDIOVASCULAR DISORDER
  5. CLOPIDOGREL [Concomitant]
     Indication: CARDIOVASCULAR DISORDER
     Dosage: 75 MG, QD
     Route: 048
  6. CLOPIDOGREL [Concomitant]
     Indication: PROPHYLAXIS
  7. LEXAPRO [Concomitant]
     Indication: DRUG USE FOR UNKNOWN INDICATION
     Dosage: 10 MG, QD
     Route: 048
     Dates: end: 20080915

REACTIONS (1)
  - PROGRESSIVE MULTIFOCAL LEUKOENCEPHALOPATHY [None]
